FAERS Safety Report 17482103 (Version 1)
Quarter: 2020Q1

REPORT INFORMATION
  Report Type: Spontaneous
  Country: US (occurrence: US)
  Receive Date: 20200302
  Receipt Date: 20200302
  Transmission Date: 20200409
  Serious: No
  Sender: FDA-Public Use
  Company Number: US-DSJP-DSU-2020-105675

PATIENT

DRUGS (1)
  1. SAVAYSA [Suspect]
     Active Substance: EDOXABAN TOSYLATE
     Indication: PRODUCT USED FOR UNKNOWN INDICATION
     Dosage: UNK
     Route: 065

REACTIONS (9)
  - Pruritus [Unknown]
  - Urticaria [Unknown]
  - Cardiac disorder [Unknown]
  - Hair colour changes [Unknown]
  - Hypersensitivity [Unknown]
  - Rash [Unknown]
  - Alopecia [Unknown]
  - Cough [Unknown]
  - Pigmentation disorder [Unknown]
